FAERS Safety Report 22912062 (Version 2)
Quarter: 2023Q4

REPORT INFORMATION
  Report Type: Spontaneous
  Country: US (occurrence: US)
  Receive Date: 20230906
  Receipt Date: 20231020
  Transmission Date: 20240110
  Serious: No
  Sender: FDA-Public Use
  Company Number: US-PFIZER INC-202300291566

PATIENT
  Sex: Male

DRUGS (2)
  1. AXITINIB [Interacting]
     Active Substance: AXITINIB
     Indication: Neoplasm malignant
     Dosage: UNK
  2. LOSARTAN POTASSIUM [Interacting]
     Active Substance: LOSARTAN POTASSIUM
     Indication: Hypertension
     Dosage: 25 MG

REACTIONS (2)
  - Drug interaction [Unknown]
  - Skin lesion [Unknown]
